FAERS Safety Report 7964186-4 (Version None)
Quarter: 2011Q4

REPORT INFORMATION
  Report Type: 
  Country: None (occurrence: None)
  Receive Date: 20111208
  Receipt Date: 20111130
  Transmission Date: 20120403
  Serious: Yes (Hospitalization)
  Sender: FDA-Public Use
  Company Number: ES-BRISTOL-MYERS SQUIBB COMPANY-16216228

PATIENT
  Age: 33 Year
  Sex: Male

DRUGS (3)
  1. CLORAZEPATE DIPOTASSIUM [Concomitant]
     Indication: SCHIZOPHRENIA
     Dosage: 10-15MG PER DAY
     Route: 048
     Dates: start: 20110623
  2. ARIPIPRAZOLE [Suspect]
     Indication: SCHIZOPHRENIA
     Dosage: 3 DOSES.DOSE INCREASED ON UNK DATE 400MG ON 25OCT2011(1D),LAST DOSE ON 25OCT11
     Route: 030
     Dates: start: 20111025, end: 20111025
  3. ZOLPIDEM [Concomitant]
     Indication: SCHIZOPHRENIA
     Route: 048
     Dates: start: 20110623

REACTIONS (1)
  - PSYCHOTIC DISORDER [None]
